FAERS Safety Report 4526830-3 (Version None)
Quarter: 2004Q4

REPORT INFORMATION
  Report Type: 
  Country: None (occurrence: None)
  Receive Date: 20041213
  Receipt Date: 20041130
  Transmission Date: 20050328
  Serious: Yes (Other)
  Sender: FDA-Public Use
  Company Number: 2004201252JP

PATIENT
  Age: 28 Year
  Sex: Male

DRUGS (2)
  1. ALPRAZOLAM [Suspect]
     Indication: PANIC DISORDER
     Dosage: SEE IMAGE
     Route: 048
  2. FLUVOXAMINE MALEATE [Suspect]
     Indication: PANIC DISORDER
     Dosage: SEE IMAGE
     Route: 048

REACTIONS (7)
  - CYCLOTHYMIC DISORDER [None]
  - DELUSION [None]
  - DELUSION OF REFERENCE [None]
  - HALLUCINATION, AUDITORY [None]
  - PSYCHOTIC DISORDER [None]
  - SCHIZOPHRENIFORM DISORDER [None]
  - THOUGHT BROADCASTING [None]
